FAERS Safety Report 19441336 (Version 1)
Quarter: 2021Q2

REPORT INFORMATION
  Report Type: Spontaneous
  Country: NL (occurrence: NL)
  Receive Date: 20210621
  Receipt Date: 20210621
  Transmission Date: 20210717
  Serious: Yes (Hospitalization)
  Sender: FDA-Public Use
  Company Number: NL-AUROBINDO-AUR-APL-2021-025618

PATIENT
  Age: 91 Year
  Sex: Female
  Weight: 65 kg

DRUGS (5)
  1. AMOXICILLIN 500 MG CAPSULES [Suspect]
     Active Substance: AMOXICILLIN
     Indication: STOMATITIS
     Dosage: 500 MILLIGRAM, 3 TIMES A DAY (3X A DAY 1 PIECE)
     Route: 065
     Dates: start: 202105, end: 20210604
  2. CLEMASTINE [Concomitant]
     Active Substance: CLEMASTINE
     Indication: PRODUCT USED FOR UNKNOWN INDICATION
     Dosage: 1 MILLIGRAM PER MILLILETER
     Route: 065
  3. DALTEPARIN SODIUM [Concomitant]
     Active Substance: DALTEPARIN SODIUM
     Indication: PRODUCT USED FOR UNKNOWN INDICATION
     Dosage: 25000 INTERNATIONAL UNIT PER MILLILITRE
     Route: 065
  4. CLOBETASOL [Concomitant]
     Active Substance: CLOBETASOL
     Indication: PRODUCT USED FOR UNKNOWN INDICATION
     Dosage: 0.5 MILLIGRAM PER GRAM
     Route: 065
  5. DEXTRAN 70;HYPROMELLOSE [Concomitant]
     Indication: PRODUCT USED FOR UNKNOWN INDICATION
     Dosage: UNK (EYE DROPS, 1/3 MG/ML (MILLIGRAMS PER MILLILITER))
     Route: 065

REACTIONS (4)
  - Erythema [Recovering/Resolving]
  - Dehydration [Recovering/Resolving]
  - Pruritus [Unknown]
  - Skin swelling [Unknown]

NARRATIVE: CASE EVENT DATE: 20210606
